FAERS Safety Report 6232046-5 (Version None)
Quarter: 2009Q2

REPORT INFORMATION
  Report Type: 
  Country: None (occurrence: None)
  Receive Date: 20090612
  Receipt Date: 20090529
  Transmission Date: 20091009
  Serious: Yes (Other)
  Sender: FDA-Public Use
  Company Number: 2009AL003789

PATIENT
  Sex: Female

DRUGS (13)
  1. LIDOCAINE HYDROCHLORIDE 2% [Suspect]
     Indication: PAIN
     Dosage: 5 PCT;UNK;TDER
  2. NICORANDIL [Concomitant]
  3. RAMIPRIL [Concomitant]
  4. ISOSORBIDE MONONITRATE [Concomitant]
  5. CLOPIDOGREL [Concomitant]
  6. ZOPLICONE [Concomitant]
  7. MEBEVERINE [Concomitant]
  8. OMEPRAZOLE [Concomitant]
  9. OXAZEPAM [Concomitant]
  10. AMITRIPTYLINE HCL [Concomitant]
  11. PEPPERMINT OIL [Concomitant]
  12. ACETAMINOPHEN W/ CODEINE [Concomitant]
  13. DOMPERIDONE [Concomitant]

REACTIONS (2)
  - ELECTROCARDIOGRAM ABNORMAL [None]
  - HEART RATE DECREASED [None]
